FAERS Safety Report 21220392 (Version 4)
Quarter: 2022Q3

REPORT INFORMATION
  Report Type: Report from Study
  Country: BR (occurrence: BR)
  Receive Date: 20220817
  Receipt Date: 20220915
  Transmission Date: 20221026
  Serious: Yes (Hospitalization, Other)
  Sender: FDA-Public Use
  Company Number: BR-NOVARTISPH-NVSC2022BR143589

PATIENT
  Age: 30 Year
  Sex: Female
  Weight: 45.7 kg

DRUGS (3)
  1. CRIZANLIZUMAB [Suspect]
     Active Substance: CRIZANLIZUMAB
     Indication: Sickle cell disease
     Dosage: 5 MG/KG, QMO
     Route: 042
  2. CRIZANLIZUMAB [Suspect]
     Active Substance: CRIZANLIZUMAB
     Dosage: 5 MG/KG, QMO
     Route: 042
     Dates: start: 20210224, end: 20220515
  3. CRIZANLIZUMAB [Suspect]
     Active Substance: CRIZANLIZUMAB
     Dosage: 100/10 MG/ML
     Route: 065
     Dates: start: 20210224, end: 20220611

REACTIONS (5)
  - Vaginal haemorrhage [Unknown]
  - Abortion spontaneous [Unknown]
  - Sickle cell anaemia with crisis [Unknown]
  - Haematoma [Unknown]
  - Maternal exposure during pregnancy [Unknown]

NARRATIVE: CASE EVENT DATE: 20220608
